FAERS Safety Report 8203666-3 (Version None)
Quarter: 2012Q1

REPORT INFORMATION
  Report Type: 
  Country: None (occurrence: None)
  Receive Date: 20120227
  Receipt Date: 20111207
  Transmission Date: 20120608
  Serious: No
  Sender: FDA-Public Use
  Company Number: 340996

PATIENT
  Age: 71 Year
  Sex: Male

DRUGS (4)
  1. METFORMIN HCL [Concomitant]
  2. TOLAZAMIDE (TOLAZAMIDE) [Concomitant]
  3. XANAX [Concomitant]
  4. VICTOZA [Suspect]
     Indication: TYPE 2 DIABETES MELLITUS
     Dosage: SUBCUTANEOUS
     Route: 058

REACTIONS (2)
  - BLOOD GLUCOSE FLUCTUATION [None]
  - FATIGUE [None]
